FAERS Safety Report 18019386 (Version 15)
Quarter: 2024Q1

REPORT INFORMATION
  Report Type: Spontaneous
  Country: US (occurrence: US)
  Receive Date: 20200714
  Receipt Date: 20240308
  Transmission Date: 20240410
  Serious: No
  Sender: FDA-Public Use
  Company Number: US-PFIZER INC-2020266292

PATIENT
  Age: 73 Year
  Sex: Female
  Weight: 68 kg

DRUGS (3)
  1. ESTRING [Suspect]
     Active Substance: ESTRADIOL
     Indication: Urinary incontinence
     Dosage: 2 MG, EVERY 3 MONTHS
     Route: 067
  2. ESTRING [Suspect]
     Active Substance: ESTRADIOL
     Indication: Osteoporosis
  3. ESTRING [Suspect]
     Active Substance: ESTRADIOL
     Indication: Urinary incontinence

REACTIONS (8)
  - Hypoacusis [Unknown]
  - Ear disorder [Unknown]
  - Headache [Unknown]
  - Memory impairment [Unknown]
  - Menopause [Unknown]
  - COVID-19 [Unknown]
  - Off label use [Unknown]
  - Drug effective for unapproved indication [Unknown]
